FAERS Safety Report 9912949 (Version 2)
Quarter: 2014Q1

REPORT INFORMATION
  Report Type: Spontaneous
  Country: IT (occurrence: IT)
  Receive Date: 20140220
  Receipt Date: 20140304
  Transmission Date: 20141002
  Serious: Yes (Other)
  Sender: FDA-Public Use
  Company Number: IT-ROCHE-1352059

PATIENT
  Age: 55 Year
  Sex: Male

DRUGS (6)
  1. PEGASYS [Suspect]
     Indication: HEPATITIS C
     Route: 058
     Dates: start: 20131104, end: 20140210
  2. FENOFIBRATO [Suspect]
     Indication: HYPERGLYCAEMIA
     Route: 048
     Dates: end: 20140203
  3. RASILEZ [Suspect]
     Indication: PRODUCT USED FOR UNKNOWN INDICATION
     Route: 048
     Dates: end: 20140203
  4. SELOKEN [Concomitant]
     Route: 065
  5. ZESTORETIC [Concomitant]
  6. NORVASC [Concomitant]

REACTIONS (2)
  - Autoimmune hepatitis [Unknown]
  - Hypertransaminasaemia [Unknown]
